FAERS Safety Report 16717017 (Version 1)
Quarter: 2019Q3

REPORT INFORMATION
  Report Type: Spontaneous
  Country: DE (occurrence: DE)
  Receive Date: 20190819
  Receipt Date: 20190819
  Transmission Date: 20191005
  Serious: Yes (Hospitalization)
  Sender: FDA-Public Use
  Company Number: DE-TEVA-2019-DE-1092480

PATIENT
  Age: 88 Year
  Sex: Female

DRUGS (19)
  1. BAYOTENSIN [Concomitant]
     Active Substance: NITRENDIPINE
     Dosage: 20 MG, BEDARF
     Route: 065
  2. ACETYLSALICYLSAEURE [Concomitant]
     Active Substance: ASPIRIN
     Dosage: 100 MG, 0-1-0-0
     Route: 065
  3. REPAGLINIDE. [Concomitant]
     Active Substance: REPAGLINIDE
     Dosage: 2 MG, 1-1-1-0
     Route: 065
  4. CYANOCOBALAMIN. [Concomitant]
     Active Substance: CYANOCOBALAMIN
     Dosage: NK MG, 1-0-0-0
     Route: 065
  5. CARVEDILOL. [Concomitant]
     Active Substance: CARVEDILOL
     Dosage: 25 MG, 0.5-0-0-0
     Route: 065
  6. FOLIC ACID. [Concomitant]
     Active Substance: FOLIC ACID
     Dosage: 5 MG, 1-0-0-0
     Route: 065
  7. AMLODIPIN [Concomitant]
     Active Substance: AMLODIPINE BESYLATE
     Dosage: 5 MG, 1-0-1-0
     Route: 065
  8. CITALOPRAM [Suspect]
     Active Substance: CITALOPRAM HYDROBROMIDE
     Dosage: 20 MG, 1-0-0-0
     Route: 065
  9. MIRTAZAPINE. [Suspect]
     Active Substance: MIRTAZAPINE
     Dosage: NK MG, AB 18.06.2017 0-1-0-0
     Route: 065
  10. VALSARTAN. [Concomitant]
     Active Substance: VALSARTAN
     Dosage: 80 MG, 1-0-0.5-0
     Route: 065
  11. JANUVIA [Concomitant]
     Active Substance: SITAGLIPTIN PHOSPHATE
     Dosage: NK MG, 1-0-0-0
     Route: 065
  12. IMODIUM [Concomitant]
     Active Substance: LOPERAMIDE HYDROCHLORIDE
     Dosage: NK MG, DEMAND
     Route: 065
  13. HYLO-VISION SINE AUGENTROPFEN 0,4ML [Concomitant]
     Dosage: NK MG, 1-1-1-0, TROPFEN
     Route: 047
  14. METAMIZOL [Concomitant]
     Active Substance: METAMIZOLE SODIUM
     Dosage: NK MG, BEDARF, TROPFEN
  15. TRAMADOL. [Suspect]
     Active Substance: TRAMADOL
     Dosage: 50 MG, DEMAND
     Route: 065
  16. SIOFOR 1000 [Concomitant]
     Dosage: 1000 MG, 1-1-1-0
     Route: 065
  17. PANTOPRAZOL [Concomitant]
     Active Substance: PANTOPRAZOLE SODIUM
     Dosage: 40 MG, 1-0-0-0
     Route: 065
  18. ZOLPIDEM [Suspect]
     Active Substance: ZOLPIDEM TARTRATE
     Dosage: 10 MG, 0-0-0-1
     Route: 065
  19. METOCLOPRAMID [Concomitant]
     Active Substance: METOCLOPRAMIDE
     Dosage: NK MG, BEDARF

REACTIONS (2)
  - Fracture [Unknown]
  - Fall [Unknown]
